FAERS Safety Report 5586194-3 (Version None)
Quarter: 2007Q4

REPORT INFORMATION
  Report Type: 
  Country: None (occurrence: None)
  Receive Date: 20071203
  Receipt Date: 20070904
  Transmission Date: 20080405
  Serious: Yes (Other)
  Sender: FDA-Public Use
  Company Number: US020915

PATIENT
  Age: 67 Year
  Sex: Male
  Weight: 76.2043 kg

DRUGS (11)
  1. TRISENOX [Suspect]
     Indication: ACUTE PROMYELOCYTIC LEUKAEMIA
     Dosage: 10MG/10ML; 5 DAYS PER WEEK INTRAVENOUS DRIP
     Route: 041
     Dates: start: 20070601, end: 20070727
  2. TRISENOX [Suspect]
     Indication: ACUTE PROMYELOCYTIC LEUKAEMIA
     Dosage: 10MG/10ML; 5 DAYS PER WEEK INTRAVENOUS DRIP
     Route: 041
     Dates: start: 20070806, end: 20070904
  3. ZOCOR [Concomitant]
  4. FLOMAX /00889901/ [Concomitant]
  5. SENOKOT /00142201/ [Concomitant]
  6. LEVAQUIN [Concomitant]
  7. VITAMIN CAP [Concomitant]
  8. PREDNISONE TAB [Concomitant]
  9. CLONAZEPAM [Concomitant]
  10. TERAZOSIN HCL [Concomitant]
  11. VESANOID [Concomitant]

REACTIONS (1)
  - NEUTROPENIA [None]
